FAERS Safety Report 8489688-6 (Version None)
Quarter: 2012Q3

REPORT INFORMATION
  Report Type: 
  Country: None (occurrence: None)
  Receive Date: 20120705
  Receipt Date: 20120627
  Transmission Date: 20120928
  Serious: Yes (Congenital Anomaly)
  Sender: FDA-Public Use
  Company Number: US-GLAXOSMITHKLINE-A0979879A

PATIENT
  Sex: Female

DRUGS (2)
  1. MULTI-VITAMINS [Concomitant]
  2. PAXIL [Suspect]
     Indication: DEPRESSION
     Route: 064
     Dates: start: 20000201, end: 20000401

REACTIONS (3)
  - FOETAL EXPOSURE DURING PREGNANCY [None]
  - ATRIAL SEPTAL DEFECT [None]
  - PULMONARY VALVE STENOSIS CONGENITAL [None]
